FAERS Safety Report 7240570-1 (Version None)
Quarter: 2011Q1

REPORT INFORMATION
  Report Type: 
  Country: None (occurrence: None)
  Receive Date: 20110120
  Receipt Date: 20110120
  Transmission Date: 20110831
  Serious: No
  Sender: FDA-Public Use
  Company Number: None

PATIENT
  Age: 56 Year
  Sex: Male
  Weight: 77.11 kg

DRUGS (2)
  1. DIVALPROEX [Suspect]
     Dosage: 1000 PO AM 1250 PO PM
     Route: 048
     Dates: start: 20100626, end: 20100723
  2. DIVALPROEX [Suspect]
     Dosage: 1000 PO AM 1250 PO PM
     Route: 048
     Dates: start: 20100724, end: 20100820

REACTIONS (1)
  - PLATELET COUNT DECREASED [None]
